FAERS Safety Report 12664661 (Version 1)
Quarter: 2016Q3

REPORT INFORMATION
  Report Type: Spontaneous
  Country: US (occurrence: US)
  Receive Date: 20160818
  Receipt Date: 20160818
  Transmission Date: 20161109
  Serious: No
  Sender: FDA-Public Use
  Company Number: US-VERNALIS THERAPEUTICS, INC.-2016VRN00039

PATIENT
  Age: 50 Year
  Sex: Female
  Weight: 95.24 kg

DRUGS (3)
  1. TUZISTRA XR [Suspect]
     Active Substance: CHLORPHENIRAMINE MALEATE\CODEINE PHOSPHATE ANHYDROUS
     Indication: BRONCHITIS
     Dosage: 5 ML, AS NEEDED
     Route: 048
     Dates: start: 20160608, end: 201606
  2. ALBUTEROL. [Concomitant]
     Active Substance: ALBUTEROL
  3. OXYCODONE HYDROCHLORIDE. [Concomitant]
     Active Substance: OXYCODONE HYDROCHLORIDE

REACTIONS (1)
  - Drug screen positive [Not Recovered/Not Resolved]

NARRATIVE: CASE EVENT DATE: 20160610
